FAERS Safety Report 9244640 (Version 1)
Quarter: 2013Q1

REPORT INFORMATION
  Report Type: Spontaneous
  Country: US (occurrence: None)
  Receive Date: 20121123
  Receipt Date: 20121123
  Transmission Date: 20140127
  Serious: No
  Sender: FDA-Public Use
  Company Number: 360663

PATIENT
  Age: 70 Year
  Sex: Male
  Weight: 80.29 kg

DRUGS (2)
  1. VICTOZA [Suspect]
     Indication: TYPE 2 DIABETES MELLITUS
     Dosage: 1.2MG, QD, SUBCUTANEOUS
     Route: 058
     Dates: start: 20120409
  2. METFORMIN (METFORMIN) [Concomitant]

REACTIONS (2)
  - Blood creatine increased [None]
  - Aspartate aminotransferase increased [None]
